FAERS Safety Report 8952892 (Version 1)
Quarter: 2012Q4

REPORT INFORMATION
  Report Type: Report from Study
  Country: US (occurrence: US)
  Receive Date: 20121203
  Receipt Date: 20121203
  Transmission Date: 20130627
  Serious: Yes (Hospitalization)
  Sender: FDA-Public Use
  Company Number: US-009507513-1211USA010214

PATIENT
  Age: 28 Year
  Sex: Female
  Weight: 99 kg

DRUGS (11)
  1. TEMOZOLOMIDE [Suspect]
     Indication: GLIOMA
     Dosage: 90 mg/m2 q12d
     Route: 042
     Dates: start: 20090629, end: 20090727
  2. BEVACIZUMAB [Suspect]
     Indication: GLIOMA
     Dosage: 10 mg/kg Q21D
     Route: 042
     Dates: start: 20090721
  3. SEASONIQUE [Concomitant]
  4. DECADRON [Concomitant]
  5. KEPRA [Concomitant]
     Dosage: 1 in 1
  6. LORAZEPAM [Concomitant]
     Dosage: UNK
  7. VERSED [Concomitant]
     Indication: CONVULSION
  8. ONDANSETRON [Concomitant]
  9. ZANTAC [Concomitant]
     Dosage: 1 in 1
  10. ZOLOFT [Concomitant]
     Dosage: 1 in 1
  11. TOPAMAX [Concomitant]
     Dosage: 1 in 1

REACTIONS (5)
  - Leukopenia [Unknown]
  - Headache [Unknown]
  - Pyrexia [Unknown]
  - Neutropenia [Unknown]
  - Thrombocytopenia [Unknown]
